FAERS Safety Report 10479607 (Version 2)
Quarter: 2014Q3

REPORT INFORMATION
  Report Type: Report from Study
  Country: US (occurrence: US)
  Receive Date: 20140927
  Receipt Date: 20140927
  Transmission Date: 20150326
  Serious: Yes (Other)
  Sender: FDA-Public Use
  Company Number: US-ALEXION PHARMACEUTICALS INC-A200901521

PATIENT
  Sex: Female
  Weight: 60 kg

DRUGS (2)
  1. PREDNISONE. [Concomitant]
     Active Substance: PREDNISONE
     Indication: PRODUCT USED FOR UNKNOWN INDICATION
  2. SOLIRIS [Suspect]
     Active Substance: ECULIZUMAB
     Indication: PAROXYSMAL NOCTURNAL HAEMOGLOBINURIA
     Route: 042

REACTIONS (24)
  - Aplastic anaemia [Unknown]
  - Blood culture positive [Unknown]
  - Leukopenia [Unknown]
  - Serum sickness [Unknown]
  - Dyspnoea [Unknown]
  - Pyrexia [Unknown]
  - Nasopharyngitis [Unknown]
  - Asthenia [Unknown]
  - Transplant [Recovered/Resolved]
  - Haemoglobinuria [Not Recovered/Not Resolved]
  - Fatigue [Unknown]
  - Platelet transfusion [Unknown]
  - Iron overload [Unknown]
  - Dyspnoea exertional [Unknown]
  - Candida infection [Unknown]
  - Haemolysis [Unknown]
  - Conjunctivitis [Unknown]
  - Skin exfoliation [Recovering/Resolving]
  - Muscular weakness [Unknown]
  - Platelet count decreased [Unknown]
  - Chromaturia [Unknown]
  - Abdominal pain [Not Recovered/Not Resolved]
  - Packed red blood cell transfusion [Unknown]
  - Pruritus [Recovered/Resolved]

NARRATIVE: CASE EVENT DATE: 201005
